FAERS Safety Report 19865549 (Version 1)
Quarter: 2021Q3

REPORT INFORMATION
  Report Type: Spontaneous
  Country: US (occurrence: US)
  Receive Date: 20210921
  Receipt Date: 20210921
  Transmission Date: 20211014
  Serious: Yes (Life-Threatening, Hospitalization, Disabling)
  Sender: FDA-Public Use
  Company Number: None

PATIENT
  Age: 31 Year
  Sex: Female

DRUGS (12)
  1. VITAMIN D [Concomitant]
     Active Substance: VITAMIN D NOS
  2. CLOBETASOL [Suspect]
     Active Substance: CLOBETASOL
  3. TRIAMCINOLONE [Suspect]
     Active Substance: TRIAMCINOLONE
     Indication: ECZEMA
     Dates: start: 20000710, end: 20140615
  4. TRIAMCINOLONE [Suspect]
     Active Substance: TRIAMCINOLONE
     Indication: PSORIASIS
     Dates: start: 20000710, end: 20140615
  5. BETAMETHASONE. [Suspect]
     Active Substance: BETAMETHASONE
  6. MENTAL HEALTH MEDICATIONS FOR ANXIETY, PTSD, AND ADHD [Concomitant]
  7. TRIAMCINOLONE [Suspect]
     Active Substance: TRIAMCINOLONE
     Indication: DERMATITIS ATOPIC
     Dates: start: 20000710, end: 20140615
  8. HYDROCORTISONE. [Suspect]
     Active Substance: HYDROCORTISONE
  9. ZINC. [Concomitant]
     Active Substance: ZINC
  10. PROBIOTICS [Concomitant]
     Active Substance: PROBIOTICS NOS
  11. PREDNISONE. [Suspect]
     Active Substance: PREDNISONE
  12. GLUTAMINE [Concomitant]
     Active Substance: GLUTAMINE

REACTIONS (14)
  - Skin exfoliation [None]
  - Screaming [None]
  - Pain [None]
  - Skin weeping [None]
  - Infection [None]
  - Asthma [None]
  - Loss of personal independence in daily activities [None]
  - Pruritus [None]
  - Seizure [None]
  - Burns third degree [None]
  - Sinusitis [None]
  - Steroid withdrawal syndrome [None]
  - Bronchitis chronic [None]
  - Impaired work ability [None]

NARRATIVE: CASE EVENT DATE: 20140615
